FAERS Safety Report 8866966 (Version 1)
Quarter: 2012Q4

REPORT INFORMATION
  Report Type: 
  Country: US (occurrence: US)
  Receive Date: 20121025
  Receipt Date: 20121025
  Transmission Date: 20130627
  Serious: No
  Sender: FDA-Public Use
  Company Number: US-AMGEN-USASP2012014165

PATIENT
  Age: 5 Year
  Sex: Female

DRUGS (2)
  1. ENBREL [Suspect]
     Indication: PRODUCT USED FOR UNKNOWN INDICATION
     Dosage: 25 mg, qwk
  2. IRON [Concomitant]

REACTIONS (4)
  - Nasopharyngitis [Recovered/Resolved]
  - Sinusitis [Recovered/Resolved]
  - Injection site swelling [Recovered/Resolved]
  - Injection site erythema [Recovered/Resolved]
